FAERS Safety Report 4399494-X (Version None)
Quarter: 2004Q3

REPORT INFORMATION
  Report Type: 
  Country: None (occurrence: None)
  Receive Date: 20040716
  Receipt Date: 20040707
  Transmission Date: 20050211
  Serious: Yes (Other)
  Sender: FDA-Public Use
  Company Number: US-ROCHE-373820

PATIENT

DRUGS (1)
  1. FUZEON [Suspect]
     Indication: DRUG USE FOR UNKNOWN INDICATION
     Dosage: STRENGTH REPORTED AS 90MG/1CC.
     Route: 058
     Dates: start: 20010515

REACTIONS (3)
  - GUILLAIN-BARRE SYNDROME [None]
  - INFLAMMATION [None]
  - MYELOPATHY [None]
